FAERS Safety Report 4490042-2 (Version None)
Quarter: 2004Q4

REPORT INFORMATION
  Report Type: 
  Country: None (occurrence: None)
  Receive Date: 20041027
  Receipt Date: 20041011
  Transmission Date: 20050328
  Serious: Yes (Hospitalization)
  Sender: FDA-Public Use
  Company Number: 200409327

PATIENT
  Sex: Female

DRUGS (1)
  1. BOTOX PURIFIED NEUROTOXIN COMPLEX [Suspect]
     Indication: MYALGIA
     Dosage: 100 UNITS ONCE IM
     Route: 030

REACTIONS (2)
  - DYSPHAGIA [None]
  - VOCAL CORD PARALYSIS [None]
